FAERS Safety Report 6675092-X (Version None)
Quarter: 2010Q2

REPORT INFORMATION
  Report Type: 
  Country: None (occurrence: None)
  Receive Date: 20100409
  Receipt Date: 20100331
  Transmission Date: 20101027
  Serious: Yes (Other)
  Sender: FDA-Public Use
  Company Number: GB-GENZYME-CLOF-1000889

PATIENT
  Sex: Male

DRUGS (12)
  1. EVOLTRA [Suspect]
     Indication: ACUTE LEUKAEMIA
     Dosage: UNK UNK, QDX5
     Route: 042
     Dates: start: 20091218, end: 20091222
  2. EVOLTRA [Suspect]
     Dosage: UNK UNK, UNK
     Route: 042
     Dates: start: 20100216, end: 20100222
  3. DAUNORUBICIN HCL [Suspect]
     Indication: ACUTE LEUKAEMIA
     Dosage: UNK UNK, QDX5
     Route: 065
     Dates: start: 20091218, end: 20091222
  4. DAUNORUBICIN HCL [Suspect]
     Dosage: UNK UNK, UNK
     Route: 042
     Dates: start: 20100216, end: 20100222
  5. ARA-C [Suspect]
     Indication: ACUTE LEUKAEMIA
     Dosage: UNK UNK, QDX5
     Route: 065
     Dates: start: 20091218, end: 20091222
  6. MYLOTARG [Suspect]
     Indication: ACUTE LEUKAEMIA
     Dosage: 6 MG/M2, QDX5
     Route: 065
     Dates: start: 20091218, end: 20091222
  7. CHLORHEXIDINE GLUCONATE [Concomitant]
     Indication: DRUG USE FOR UNKNOWN INDICATION
     Dosage: 10 ML, UNK
     Dates: start: 20091218
  8. NYSTATIN [Concomitant]
     Indication: DRUG USE FOR UNKNOWN INDICATION
     Dosage: 1 ML, UNK
     Dates: start: 20091218
  9. ACYCLOVIR SODIUM [Concomitant]
     Indication: DRUG USE FOR UNKNOWN INDICATION
     Dosage: 400 MG, UNK
     Dates: start: 20091218
  10. PARACETAMOL [Concomitant]
     Indication: DRUG USE FOR UNKNOWN INDICATION
     Dosage: 1 G, UNK
     Dates: start: 20091201, end: 20100101
  11. CODEINE SULFATE [Concomitant]
     Indication: DRUG USE FOR UNKNOWN INDICATION
     Dosage: 30 MG, UNK
     Dates: start: 20091201, end: 20100101
  12. ITRACONAZOLE [Concomitant]
     Indication: DRUG USE FOR UNKNOWN INDICATION
     Dosage: 200 MG, UNK
     Dates: start: 20091111

REACTIONS (2)
  - ANAL ABSCESS [None]
  - THROMBOCYTOPENIA [None]
